FAERS Safety Report 4654530-8 (Version None)
Quarter: 2005Q2

REPORT INFORMATION
  Report Type: 
  Country: None (occurrence: None)
  Receive Date: 20050404
  Receipt Date: 20041206
  Transmission Date: 20051028
  Serious: No
  Sender: FDA-Public Use
  Company Number: USA041285419

PATIENT
  Sex: Female

DRUGS (3)
  1. CYMBALTA [Suspect]
     Indication: DEPRESSION
     Dosage: 30 MG
  2. PROZAC [Suspect]
  3. WELLBUTRIN [Concomitant]

REACTIONS (2)
  - ABDOMINAL DISTENSION [None]
  - VOMITING [None]
